FAERS Safety Report 7592392-X (Version None)
Quarter: 2011Q3

REPORT INFORMATION
  Report Type: 
  Country: None (occurrence: None)
  Receive Date: 20110706
  Receipt Date: 20110701
  Transmission Date: 20111222
  Serious: Yes (Death)
  Sender: FDA-Public Use
  Company Number: ZA-CELGENEUS-143-CCAZA-11070030

PATIENT
  Age: 62 Year
  Sex: Male
  Weight: 101.1 kg

DRUGS (1)
  1. AZACITIDINE [Suspect]
     Dosage: 70 MILLIGRAM/SQ. METER
     Route: 051
     Dates: start: 20110620, end: 20110624

REACTIONS (1)
  - DEATH [None]
